FAERS Safety Report 12225998 (Version 2)
Quarter: 2016Q2

REPORT INFORMATION
  Report Type: Spontaneous
  Country: GB (occurrence: GB)
  Receive Date: 20160331
  Receipt Date: 20160519
  Transmission Date: 20160815
  Serious: Yes (Hospitalization, Other)
  Sender: FDA-Public Use
  Company Number: GB-BAYER-2016-057942

PATIENT
  Age: 46 Year
  Sex: Female

DRUGS (1)
  1. MIRENA [Suspect]
     Active Substance: LEVONORGESTREL
     Dosage: 20 MCG/24HR, CONT
     Route: 015
     Dates: start: 201005, end: 20150505

REACTIONS (11)
  - Post procedural haematoma [None]
  - Depressed mood [None]
  - Procedural pain [None]
  - Bartholin^s cyst [None]
  - Complication of device removal [None]
  - Device breakage [None]
  - Embedded device [None]
  - Urinary tract infection [None]
  - Device difficult to use [None]
  - Kidney infection [None]
  - Anxiety [None]

NARRATIVE: CASE EVENT DATE: 2015
